FAERS Safety Report 23185970 (Version 1)
Quarter: 2023Q4

REPORT INFORMATION
  Report Type: Report from Study
  Country: US (occurrence: US)
  Receive Date: 20231115
  Receipt Date: 20231115
  Transmission Date: 20240110
  Serious: Yes (Death)
  Sender: FDA-Public Use
  Company Number: US-ABBVIE-5494072

PATIENT
  Sex: Male

DRUGS (3)
  1. VENCLEXTA [Suspect]
     Active Substance: VENETOCLAX
     Indication: Product used for unknown indication
     Dosage: STRENGTH-100 MG?TAKE 1 TABLET BY MOUTH ON DAY 1,
     Route: 048
  2. VENCLEXTA [Suspect]
     Active Substance: VENETOCLAX
     Indication: Product used for unknown indication
     Dosage: 2 TABLETS ON DAY 2, ?STRENGTH-100 MG
     Route: 048
  3. VENCLEXTA [Suspect]
     Active Substance: VENETOCLAX
     Indication: Product used for unknown indication
     Dosage: THEN 4 TABLETS ONCE DAILY THEREAFTER WITH FOOD AND FULL GLASS OF WATER (TAKE WITH BREAKFAST)?STRE...
     Route: 048

REACTIONS (1)
  - Death [Fatal]
